FAERS Safety Report 6151289-2 (Version None)
Quarter: 2009Q2

REPORT INFORMATION
  Report Type: 
  Country: None (occurrence: None)
  Receive Date: 20090410
  Receipt Date: 20090407
  Transmission Date: 20091009
  Serious: Yes (Death)
  Sender: FDA-Public Use
  Company Number: US-ASTRAZENECA-2009AC01039

PATIENT
  Age: 35 Year
  Sex: Female

DRUGS (1)
  1. LIDOCAINE [Suspect]
     Route: 058

REACTIONS (2)
  - CONVULSION [None]
  - DRUG TOXICITY [None]
